FAERS Safety Report 5279709-6 (Version None)
Quarter: 2007Q1

REPORT INFORMATION
  Report Type: 
  Country: None (occurrence: None)
  Receive Date: 20070328
  Receipt Date: 20070323
  Transmission Date: 20070707
  Serious: Yes (Other)
  Sender: FDA-Public Use
  Company Number: FR-ABBOTT-05P-056-0314437-00

PATIENT
  Age: 52 Year
  Sex: Female

DRUGS (5)
  1. DEPAKENE [Suspect]
     Indication: POST-TRAUMATIC EPILEPSY
     Route: 048
     Dates: start: 19950101
  2. DEPAKENE [Suspect]
     Dosage: VALPORATE DE SODIUM
     Route: 048
     Dates: start: 20060101, end: 20070112
  3. DI-GESIC [Interacting]
     Indication: DRUG USE FOR UNKNOWN INDICATION
     Route: 048
  4. TRILEPTAL [Concomitant]
     Indication: EPILEPSY
     Route: 050
  5. GABAPENTIN [Concomitant]
     Indication: EPILEPSY
     Route: 048

REACTIONS (5)
  - ANTICONVULSANT DRUG LEVEL DECREASED [None]
  - CONVULSION [None]
  - DRUG INTERACTION [None]
  - DRUG LEVEL DECREASED [None]
  - FALL [None]
